FAERS Safety Report 7706298-6 (Version None)
Quarter: 2011Q3

REPORT INFORMATION
  Report Type: 
  Country: None (occurrence: None)
  Receive Date: 20110824
  Receipt Date: 20110818
  Transmission Date: 20111222
  Serious: Yes (Other)
  Sender: FDA-Public Use
  Company Number: US-PFIZER INC-2011191906

PATIENT
  Age: 14 Year
  Sex: Female

DRUGS (1)
  1. ETHOSUXIMIDE [Suspect]
     Dosage: UNK

REACTIONS (3)
  - ANXIETY [None]
  - CRYING [None]
  - AUTISM [None]
